FAERS Safety Report 24674822 (Version 1)
Quarter: 2024Q4

REPORT INFORMATION
  Report Type: Spontaneous
  Country: GB (occurrence: GB)
  Receive Date: 20241128
  Receipt Date: 20241128
  Transmission Date: 20250114
  Serious: Yes (Other)
  Sender: ABBVIE
  Company Number: None

PATIENT
  Age: 46 Year
  Sex: Female
  Weight: 66 kg

DRUGS (1)
  1. BOTOX [Suspect]
     Active Substance: ONABOTULINUMTOXINA
     Indication: Facial cosmetic procedure
     Dosage: TIME INTERVAL: AS NECESSARY
     Route: 030
     Dates: start: 20231207, end: 20231207

REACTIONS (17)
  - Histamine intolerance [Not Recovered/Not Resolved]
  - Insomnia [Recovering/Resolving]
  - Anxiety [Recovering/Resolving]
  - Medication error [Unknown]
  - Migraine [Not Recovered/Not Resolved]
  - Tinnitus [Not Recovered/Not Resolved]
  - Neck pain [Not Recovered/Not Resolved]
  - Panic attack [Unknown]
  - Facial pain [Unknown]
  - Oropharyngeal pain [Unknown]
  - Dysphagia [Unknown]
  - Skin discolouration [Unknown]
  - Dizziness [Unknown]
  - Dyspnoea [Unknown]
  - Visual snow syndrome [Unknown]
  - Flushing [Unknown]
  - Sleep deficit [Unknown]

NARRATIVE: CASE EVENT DATE: 20231211
